FAERS Safety Report 11935659 (Version 1)
Quarter: 2016Q1

REPORT INFORMATION
  Report Type: Report from Study
  Country: CO (occurrence: CO)
  Receive Date: 20160121
  Receipt Date: 20160121
  Transmission Date: 20160526
  Serious: Yes (Hospitalization, Other)
  Sender: FDA-Public Use
  Company Number: CO-ASTELLAS-2015US048344

PATIENT
  Age: 33 Year
  Sex: Male
  Weight: 53 kg

DRUGS (2)
  1. TACROLIMUS. [Suspect]
     Active Substance: TACROLIMUS
     Dosage: 5 MG, ONCE DAILY (EVERY 24 HOURS)
     Route: 048
  2. TACROLIMUS. [Suspect]
     Active Substance: TACROLIMUS
     Indication: RENAL TRANSPLANT
     Dosage: 3 MG, ONCE DAILY (EVERY 24 HOURS)
     Route: 048
     Dates: start: 20140828

REACTIONS (4)
  - Infected fistula [Not Recovered/Not Resolved]
  - Urosepsis [Not Recovered/Not Resolved]
  - Toxicity to various agents [Unknown]
  - Condition aggravated [Unknown]

NARRATIVE: CASE EVENT DATE: 20151207
